FAERS Safety Report 4642892-7 (Version None)
Quarter: 2005Q2

REPORT INFORMATION
  Report Type: 
  Country: None (occurrence: None)
  Receive Date: 20050420
  Receipt Date: 20050411
  Transmission Date: 20051028
  Serious: Yes (Hospitalization)
  Sender: FDA-Public Use
  Company Number: GBT031201107

PATIENT
  Age: 57 Year
  Sex: Female
  Weight: 79 kg

DRUGS (11)
  1. PEMETREXED [Suspect]
     Indication: MESOTHELIOMA
     Dosage: 950 MG/1 OTHER
     Dates: start: 20031203, end: 20041203
  2. CISPLATIN [Suspect]
     Indication: MESOTHELIOMA
     Dosage: 140 MG/1 OTHER
     Dates: start: 20031203, end: 20031203
  3. DIAZEPAM [Concomitant]
  4. MOVICOL [Concomitant]
  5. FOLIC ACID [Concomitant]
  6. VITAMIN B-12 [Concomitant]
  7. DEXAMETHASONE [Concomitant]
  8. ASPIRIN [Concomitant]
  9. LEVOFLOXACIN [Concomitant]
  10. LENOGRASTIM [Concomitant]
  11. WARFARIN SODIUM [Concomitant]

REACTIONS (18)
  - ABDOMINAL PAIN [None]
  - ANOREXIA [None]
  - ANXIETY [None]
  - ASCITES [None]
  - ASPARTATE AMINOTRANSFERASE INCREASED [None]
  - BLOOD ALBUMIN DECREASED [None]
  - BLOOD BILIRUBIN INCREASED [None]
  - BLOOD PHOSPHORUS DECREASED [None]
  - BLOOD PRESSURE INCREASED [None]
  - BODY TEMPERATURE DECREASED [None]
  - DISEASE PROGRESSION [None]
  - INTERNATIONAL NORMALISED RATIO INCREASED [None]
  - MOBILITY DECREASED [None]
  - NAUSEA [None]
  - OEDEMA PERIPHERAL [None]
  - PLATELET COUNT INCREASED [None]
  - VOMITING [None]
  - WHITE BLOOD CELL COUNT INCREASED [None]
